FAERS Safety Report 9066147 (Version 1)
Quarter: 2013Q1

REPORT INFORMATION
  Report Type: Report from Study
  Country: US (occurrence: US)
  Receive Date: 20130131
  Receipt Date: 20130131
  Transmission Date: 20140127
  Serious: No
  Sender: FDA-Public Use
  Company Number: US-ABBOTT-12P-163-1007566-00

PATIENT
  Age: 77 None
  Sex: Female
  Weight: 87.17 kg

DRUGS (11)
  1. HUMIRA [Suspect]
     Indication: CROHN^S DISEASE
     Dosage: UNKNOWN
     Route: 058
     Dates: start: 200711
  2. ASPIRIN [Concomitant]
     Indication: CARDIAC DISORDER
  3. CARDIZEM [Concomitant]
     Indication: CARDIAC DISORDER
  4. IMODIUM [Concomitant]
     Indication: DIARRHOEA
  5. WATER PILL [Concomitant]
     Indication: PRODUCT USED FOR UNKNOWN INDICATION
  6. POTASSIUM [Concomitant]
     Indication: PRODUCT USED FOR UNKNOWN INDICATION
  7. 6MP [Concomitant]
     Indication: CROHN^S DISEASE
  8. NITROGLYCERIN [Concomitant]
     Indication: CHEST PAIN
  9. OMEPRAZOLE [Concomitant]
     Indication: GASTROOESOPHAGEAL REFLUX DISEASE
  10. PRAVASTATIN [Concomitant]
     Indication: CARDIAC DISORDER
  11. TRIBUTALINE [Concomitant]
     Indication: PRODUCT USED FOR UNKNOWN INDICATION

REACTIONS (5)
  - Eczema [Not Recovered/Not Resolved]
  - Injection site vesicles [Not Recovered/Not Resolved]
  - Injection site pain [Recovered/Resolved]
  - Injection site pain [Not Recovered/Not Resolved]
  - Rash pruritic [Not Recovered/Not Resolved]
